FAERS Safety Report 15328536 (Version 1)
Quarter: 2018Q3

REPORT INFORMATION
  Report Type: Report from Study
  Country: US (occurrence: US)
  Receive Date: 20180829
  Receipt Date: 20180829
  Transmission Date: 20181010
  Serious: Yes (Hospitalization, Other)
  Sender: FDA-Public Use
  Company Number: US-ROCHE-2074524

PATIENT
  Age: 78 Year
  Sex: Male

DRUGS (4)
  1. BEVACIZUMAB. [Suspect]
     Active Substance: BEVACIZUMAB
     Indication: MESOTHELIOMA
     Route: 042
  2. LISINOPRIL. [Concomitant]
     Active Substance: LISINOPRIL
     Route: 065
  3. AMLODIPINE [Concomitant]
     Active Substance: AMLODIPINE BESYLATE
     Route: 065
  4. ATEZOLIZUMAB. [Suspect]
     Active Substance: ATEZOLIZUMAB
     Indication: MESOTHELIOMA
     Route: 042

REACTIONS (4)
  - Embolism [Unknown]
  - Hypertension [Unknown]
  - Angiopathy [Unknown]
  - Angiopathy [Unknown]

NARRATIVE: CASE EVENT DATE: 20180209
